FAERS Safety Report 11563712 (Version 1)
Quarter: 2015Q3

REPORT INFORMATION
  Report Type: Spontaneous
  Country: US (occurrence: US)
  Receive Date: 20150916
  Receipt Date: 20150916
  Transmission Date: 20151125
  Serious: No
  Sender: FDA-Public Use
  Company Number: US-ELI_LILLY_AND_COMPANY-US200902002464

PATIENT
  Age: 75 Year
  Sex: Female

DRUGS (6)
  1. COUMADIN [Concomitant]
     Active Substance: WARFARIN SODIUM
     Dosage: 7.5 MG, UNK
     Dates: start: 1998
  2. LASIX [Concomitant]
     Active Substance: FUROSEMIDE
     Dosage: 20 MG, UNK
  3. ALLEGRA [Concomitant]
     Active Substance: FEXOFENADINE HYDROCHLORIDE
     Dosage: 60 MG, UNK
  4. FORTEO [Suspect]
     Active Substance: TERIPARATIDE
     Indication: OSTEOPOROSIS
     Dates: start: 20080731
  5. DIGOXIN. [Concomitant]
     Active Substance: DIGOXIN
     Dosage: 250 UG, UNK
  6. VERAPAMIL [Concomitant]
     Active Substance: VERAPAMIL HYDROCHLORIDE
     Dosage: 120 MG, UNK

REACTIONS (6)
  - Peripheral swelling [Unknown]
  - Erythema [Unknown]
  - Dyspepsia [Recovering/Resolving]
  - Contusion [Unknown]
  - Fracture [Unknown]
  - Fall [Unknown]

NARRATIVE: CASE EVENT DATE: 20090207
